FAERS Safety Report 24311373 (Version 1)
Quarter: 2024Q3

REPORT INFORMATION
  Report Type: Spontaneous
  Country: US (occurrence: US)
  Receive Date: 20240912
  Receipt Date: 20240912
  Transmission Date: 20241017
  Serious: No
  Sender: CELLTRION
  Company Number: US-CELLTRION INC.-2024US017900

PATIENT

DRUGS (1)
  1. ZYMFENTRA [Suspect]
     Active Substance: INFLIXIMAB-DYYB
     Indication: Crohn^s disease
     Dosage: 120MG/ML PEN KIT -INJECT THE CONTENTS OF ONE DEVICE UNDER THE SKIN EVERY TWO WEEKS
     Route: 058

REACTIONS (5)
  - Hypersomnia [Unknown]
  - Malaise [Unknown]
  - Musculoskeletal discomfort [Unknown]
  - Arthropathy [Unknown]
  - Peripheral swelling [Unknown]
